FAERS Safety Report 5824720-7 (Version None)
Quarter: 2008Q3

REPORT INFORMATION
  Report Type: 
  Country: None (occurrence: None)
  Receive Date: 20080728
  Receipt Date: 20080717
  Transmission Date: 20090109
  Serious: Yes (Other)
  Sender: FDA-Public Use
  Company Number: AU-SANOFI-SYNTHELABO-A01200808172

PATIENT
  Age: 36 Year
  Sex: Male

DRUGS (3)
  1. ZOLPIDEM TARTRATE [Suspect]
     Indication: DRUG USE FOR UNKNOWN INDICATION
     Dosage: UNK
     Route: 065
  2. ANTIHISTAMINE [Concomitant]
     Indication: DRUG USE FOR UNKNOWN INDICATION
     Dosage: UNK
     Route: 065
  3. ALCOHOL [Concomitant]
     Dosage: 1 BOTTLE OF RED WINE UNK
     Route: 048

REACTIONS (5)
  - AMNESIA [None]
  - BLOOD ALCOHOL INCREASED [None]
  - ROAD TRAFFIC ACCIDENT [None]
  - SLEEP-RELATED EATING DISORDER [None]
  - SOMNAMBULISM [None]
